FAERS Safety Report 8415785-7 (Version None)
Quarter: 2012Q2

REPORT INFORMATION
  Report Type: 
  Country: None (occurrence: None)
  Receive Date: 20120606
  Receipt Date: 20120530
  Transmission Date: 20120825
  Serious: No
  Sender: FDA-Public Use
  Company Number: US-ASTRAZENECA-2011SE41524

PATIENT
  Age: 55 Year
  Sex: Female

DRUGS (2)
  1. NEXIUM [Suspect]
     Route: 048
  2. NEXIUM [Suspect]
     Dosage: ONCE AND SOMETIMES TWICE A DAY
     Route: 048
     Dates: start: 20010101, end: 20110101

REACTIONS (2)
  - MULTIPLE FRACTURES [None]
  - OSTEOPOROSIS [None]
